FAERS Safety Report 8189862-2 (Version None)
Quarter: 2012Q1

REPORT INFORMATION
  Report Type: 
  Country: None (occurrence: None)
  Receive Date: 20120307
  Receipt Date: 20120229
  Transmission Date: 20120608
  Serious: Yes (Hospitalization, Other)
  Sender: FDA-Public Use
  Company Number: US-AMGEN-USASP2012014026

PATIENT
  Age: 62 Year
  Sex: Male

DRUGS (4)
  1. RIBAVIRIN [Concomitant]
  2. INCIVEK [Concomitant]
  3. NEUPOGEN [Suspect]
     Indication: NEUTROPENIA
  4. INTERFERON [Concomitant]
     Indication: HEPATITIS C

REACTIONS (3)
  - NEUTROPHIL COUNT DECREASED [None]
  - HEPATITIS C [None]
  - CELLULITIS [None]
